FAERS Safety Report 23780029 (Version 1)
Quarter: 2024Q2

REPORT INFORMATION
  Report Type: Other
  Country: US (occurrence: US)
  Receive Date: 20240424
  Receipt Date: 20240424
  Transmission Date: 20240716
  Serious: Yes (Hospitalization)
  Sender: FDA-Public Use
  Company Number: US-B.Braun Medical Inc.-2155965

PATIENT
  Age: 24 Year
  Sex: Female

DRUGS (3)
  1. DEXTROSE\LIDOCAINE HYDROCHLORIDE [Suspect]
     Active Substance: DEXTROSE\LIDOCAINE HYDROCHLORIDE
     Indication: Ventricular tachycardia
  2. SOTALOL [Suspect]
     Active Substance: SOTALOL
  3. METOPROLOL [Suspect]
     Active Substance: METOPROLOL

REACTIONS (3)
  - Drug ineffective [Unknown]
  - Foetal heart rate decreased [Unknown]
  - Maternal exposure during pregnancy [Unknown]
